FAERS Safety Report 18262292 (Version 1)
Quarter: 2020Q3

REPORT INFORMATION
  Report Type: Spontaneous
  Country: US (occurrence: US)
  Receive Date: 20200913
  Receipt Date: 20200913
  Transmission Date: 20201103
  Serious: Yes (Hospitalization)
  Sender: FDA-Public Use
  Company Number: None

PATIENT
  Age: 40 Year
  Sex: Female
  Weight: 68.85 kg

DRUGS (6)
  1. NP THYROID [Suspect]
     Active Substance: LEVOTHYROXINE\LIOTHYRONINE
     Indication: THYROIDECTOMY
     Dosage: ?          QUANTITY:1 TABLET(S);?
     Route: 048
     Dates: start: 20200728, end: 20200828
  2. KLONAZAPAM [Concomitant]
  3. TYLENOL PM [Concomitant]
     Active Substance: ACETAMINOPHEN\DIPHENHYDRAMINE
  4. HYDROXOCOBALAMIN [Concomitant]
     Active Substance: HYDROXOCOBALAMIN
  5. ASMANEX [Concomitant]
     Active Substance: MOMETASONE FUROATE
  6. XOPENEX [Concomitant]
     Active Substance: LEVALBUTEROL HYDROCHLORIDE

REACTIONS (8)
  - Nausea [None]
  - Depressed level of consciousness [None]
  - Dizziness [None]
  - Headache [None]
  - Nystagmus [None]
  - Palpitations [None]
  - Hashimoto^s encephalopathy [None]
  - Condition aggravated [None]

NARRATIVE: CASE EVENT DATE: 20200911
